FAERS Safety Report 16223690 (Version 2)
Quarter: 2019Q2

REPORT INFORMATION
  Report Type: Report from Study
  Country: MX (occurrence: MX)
  Receive Date: 20190422
  Receipt Date: 20190523
  Transmission Date: 20190711
  Serious: Yes (Other)
  Sender: FDA-Public Use
  Company Number: PHHY2019MX018550

PATIENT
  Age: 92 Year
  Sex: Female
  Weight: 45 kg

DRUGS (5)
  1. MADOPAR [Concomitant]
     Active Substance: BENSERAZIDE HYDROCHLORIDE\LEVODOPA
     Indication: PARKINSON^S DISEASE
     Dosage: 0.5 DF, BID (0.5 DF)
     Route: 048
     Dates: start: 201901
  2. ENTRESTO [Suspect]
     Active Substance: SACUBITRIL\VALSARTAN
     Indication: CARDIAC DISORDER
     Dosage: 100 MG, BID
     Route: 048
     Dates: start: 201805, end: 201902
  3. SERTRALINE [Suspect]
     Active Substance: SERTRALINE HYDROCHLORIDE
     Indication: DEPRESSION
     Dosage: 50 MG, QD
     Route: 048
     Dates: start: 2017
  4. IPRATROPIUM BROMIDE. [Concomitant]
     Active Substance: IPRATROPIUM BROMIDE
     Indication: PULMONARY CONGESTION
     Dosage: 1 DF, Q8H (ONE SHOT EVERY 8 HOURS)
     Route: 055
     Dates: start: 201803
  5. VIVITAR [Concomitant]
     Indication: PULMONARY HYPERTENSION
     Dosage: 0.25 DF, (1/4 OF 1000 MG) (THREE DAYS A WEEK)
     Route: 048

REACTIONS (8)
  - Product use in unapproved indication [Unknown]
  - Feeling abnormal [Unknown]
  - Chest discomfort [Unknown]
  - Asphyxia [Unknown]
  - Blood pressure decreased [Recovering/Resolving]
  - Parkinson^s disease [Unknown]
  - Product prescribing error [Unknown]
  - Fatigue [Unknown]

NARRATIVE: CASE EVENT DATE: 201902
